FAERS Safety Report 23571392 (Version 3)
Quarter: 2024Q2

REPORT INFORMATION
  Report Type: Report from Study
  Country: FR (occurrence: FR)
  Receive Date: 20240227
  Receipt Date: 20240401
  Transmission Date: 20240716
  Serious: Yes (Hospitalization)
  Sender: FDA-Public Use
  Company Number: FR-PFIZER INC-PV202400025841

PATIENT
  Sex: Female
  Weight: 38 kg

DRUGS (1)
  1. ELRANATAMAB [Suspect]
     Active Substance: ELRANATAMAB
     Indication: Plasma cell myeloma refractory
     Dosage: 12 MG, 1ST ESCALATION DOSE C1D1
     Dates: start: 20240130

REACTIONS (1)
  - Cytokine release syndrome [Recovered/Resolved]
